FAERS Safety Report 9300107 (Version 1)
Quarter: 2013Q2

REPORT INFORMATION
  Report Type: Spontaneous
  Country: US (occurrence: US)
  Receive Date: 20130521
  Receipt Date: 20130521
  Transmission Date: 20140414
  Serious: No
  Sender: FDA-Public Use
  Company Number: US-MYLANLABS-2012S1025786

PATIENT
  Age: 55 Year
  Sex: Female

DRUGS (4)
  1. LOTRONEX /01482802/ [Suspect]
     Indication: DIARRHOEA
     Route: 048
     Dates: start: 2012
  2. AMITRIPTYLINE HYDROCHLORIDE TABLETS, USP [Suspect]
     Indication: PAIN
     Route: 048
     Dates: start: 20120929, end: 2012
  3. AMITRIPTYLINE HYDROCHLORIDE TABLETS, USP [Suspect]
     Indication: OFF LABEL USE
     Route: 048
     Dates: start: 20120929, end: 2012
  4. GABAPENTIN [Concomitant]

REACTIONS (2)
  - Syncope [Recovered/Resolved]
  - Hot flush [Recovered/Resolved]
